FAERS Safety Report 17306195 (Version 1)
Quarter: 2020Q1

REPORT INFORMATION
  Report Type: Spontaneous
  Country: GB (occurrence: GB)
  Receive Date: 20200123
  Receipt Date: 20200123
  Transmission Date: 20200409
  Serious: Yes (Other)
  Sender: FDA-Public Use
  Company Number: NVSC2020GB014352

PATIENT
  Age: 59 Year
  Sex: Female
  Weight: 62.59 kg

DRUGS (2)
  1. DOXYCYCLINE HYCLATE. [Suspect]
     Active Substance: DOXYCYCLINE HYCLATE
     Dosage: 100 MG, QD (SECOND DAY)
     Route: 048
     Dates: start: 20191005, end: 20191006
  2. DOXYCYCLINE HYCLATE. [Suspect]
     Active Substance: DOXYCYCLINE HYCLATE
     Indication: ANIMAL BITE
     Dosage: 200 MG, QD (FIRST DAY)
     Route: 048
     Dates: start: 20191004, end: 20191004

REACTIONS (3)
  - Neck pain [Not Recovered/Not Resolved]
  - Head discomfort [Not Recovered/Not Resolved]
  - Headache [Recovering/Resolving]

NARRATIVE: CASE EVENT DATE: 20191004
